FAERS Safety Report 24058776 (Version 3)
Quarter: 2024Q3

REPORT INFORMATION
  Report Type: Report from Study
  Country: UY (occurrence: UY)
  Receive Date: 20240708
  Receipt Date: 20240809
  Transmission Date: 20241017
  Serious: Yes (Hospitalization)
  Sender: ROCHE
  Company Number: UY-ROCHE-10000008909

PATIENT
  Age: 51 Year
  Sex: Female

DRUGS (3)
  1. OBINUTUZUMAB [Suspect]
     Active Substance: OBINUTUZUMAB
     Indication: Diffuse large B-cell lymphoma
     Dosage: FREQUENCY WAS NOT REPORTED
     Route: 042
  2. GLOFITAMAB [Suspect]
     Active Substance: GLOFITAMAB
     Indication: Diffuse large B-cell lymphoma
     Route: 065
  3. TOCILIZUMAB [Concomitant]
     Active Substance: TOCILIZUMAB
     Route: 042

REACTIONS (3)
  - Sepsis [Unknown]
  - Shock [Unknown]
  - Pleural effusion [Unknown]

NARRATIVE: CASE EVENT DATE: 20240601
